FAERS Safety Report 13845460 (Version 1)
Quarter: 2017Q3

REPORT INFORMATION
  Report Type: Spontaneous
  Country: US (occurrence: US)
  Receive Date: 20170808
  Receipt Date: 20170808
  Transmission Date: 20171127
  Serious: No
  Sender: FDA-Public Use
  Company Number: US-ASTRAZENECA-2017SE78790

PATIENT
  Age: 29137 Day
  Sex: Male
  Weight: 83.9 kg

DRUGS (2)
  1. NEURONTIN [Concomitant]
     Active Substance: GABAPENTIN
     Indication: MULTIPLE SCLEROSIS
     Dosage: TOTAL OF 3200 MG PER DAY, EXACT FREQUENCY IS UNKNOWN
     Route: 065
  2. MOVANTIK [Suspect]
     Active Substance: NALOXEGOL OXALATE
     Indication: CONSTIPATION
     Route: 048
     Dates: start: 20170724

REACTIONS (5)
  - Dyschezia [Unknown]
  - Gastrointestinal pain [Unknown]
  - Faeces hard [Unknown]
  - Defaecation urgency [Recovered/Resolved]
  - Constipation [Unknown]

NARRATIVE: CASE EVENT DATE: 20170724
